FAERS Safety Report 6917100-4 (Version None)
Quarter: 2010Q3

REPORT INFORMATION
  Report Type: 
  Country: None (occurrence: None)
  Receive Date: 20100810
  Receipt Date: 20100802
  Transmission Date: 20110219
  Serious: No
  Sender: FDA-Public Use
  Company Number: B0667436A

PATIENT
  Age: 72 Year
  Sex: Female

DRUGS (3)
  1. REQUIP [Suspect]
     Indication: PRODUCT USED FOR UNKNOWN INDICATION
     Route: 048
  2. ARTANE [Concomitant]
     Route: 048
  3. MADOPAR [Concomitant]
     Route: 048

REACTIONS (1)
  - HYPERTHERMIA [None]
